FAERS Safety Report 9256026 (Version 3)
Quarter: 2014Q4

REPORT INFORMATION
  Report Type: Spontaneous
  Country: DK (occurrence: GB)
  Receive Date: 20130425
  Receipt Date: 20141002
  Transmission Date: 20150529
  Serious: Yes (Death)
  Sender: FDA-Public Use
  Company Number: GB-FRI-1000044719

PATIENT
  Age: 38 Year
  Sex: Male
  Weight: 93 kg

DRUGS (4)
  1. DIAZEPAM. [Concomitant]
     Active Substance: DIAZEPAM
  2. CITALOPRAM [Suspect]
     Active Substance: CITALOPRAM HYDROBROMIDE
     Indication: DEPRESSION
     Dosage: 20 MG
     Route: 048
     Dates: start: 20111128, end: 20111202
  3. AMISULPRIDE [Suspect]
     Active Substance: AMISULPRIDE
     Indication: SCHIZOPHRENIA
     Dosage: 1200 MG
     Route: 048
     Dates: start: 20111128, end: 20111202
  4. SUMATRIPTAN. [Concomitant]
     Active Substance: SUMATRIPTAN

REACTIONS (4)
  - Long QT syndrome [Not Recovered/Not Resolved]
  - Death [Fatal]
  - Syncope [Unknown]
  - Drug interaction [Fatal]

NARRATIVE: CASE EVENT DATE: 20111128
